FAERS Safety Report 16173908 (Version 1)
Quarter: 2019Q2

REPORT INFORMATION
  Report Type: Spontaneous
  Country: US (occurrence: US)
  Receive Date: 20190409
  Receipt Date: 20190409
  Transmission Date: 20190711
  Serious: No
  Sender: FDA-Public Use
  Company Number: US-TEVA-2019-US-1037329

PATIENT
  Sex: Female

DRUGS (2)
  1. NUVIGIL [Suspect]
     Active Substance: ARMODAFINIL
     Indication: FATIGUE
     Route: 065
  2. PROVIGIL [Suspect]
     Active Substance: MODAFINIL
     Indication: FATIGUE
     Route: 065

REACTIONS (2)
  - Product use in unapproved indication [Unknown]
  - Treatment failure [Unknown]
